FAERS Safety Report 20541629 (Version 1)
Quarter: 2022Q1

REPORT INFORMATION
  Report Type: Spontaneous
  Country: FR (occurrence: FR)
  Receive Date: 20220302
  Receipt Date: 20220302
  Transmission Date: 20220423
  Serious: Yes (Other)
  Sender: FDA-Public Use
  Company Number: None

PATIENT
  Age: 11 Year
  Sex: Male
  Weight: 40 kg

DRUGS (2)
  1. CONCERTA [Suspect]
     Active Substance: METHYLPHENIDATE HYDROCHLORIDE
     Indication: Product used for unknown indication
     Dosage: 36 MG/J
     Route: 048
     Dates: start: 202110
  2. DESLORATADINE [Concomitant]
     Active Substance: DESLORATADINE
     Indication: Urticaria
     Dosage: 5 MG/J
     Route: 048
     Dates: start: 202109

REACTIONS (2)
  - Vomiting [Recovered/Resolved]
  - Partial seizures [Recovered/Resolved]

NARRATIVE: CASE EVENT DATE: 20211001
